FAERS Safety Report 11852693 (Version 2)
Quarter: 2016Q1

REPORT INFORMATION
  Report Type: Spontaneous
  Country: JP (occurrence: JP)
  Receive Date: 20151218
  Receipt Date: 20160115
  Transmission Date: 20160526
  Serious: Yes (Other)
  Sender: FDA-Public Use
  Company Number: JP-ASTRAZENECA-2015SF27354

PATIENT
  Sex: Female

DRUGS (2)
  1. IRESSA [Suspect]
     Active Substance: GEFITINIB
     Indication: NON-SMALL CELL LUNG CANCER
     Route: 048
  2. RIFAMPICIN [Interacting]
     Active Substance: RIFAMPIN
     Dosage: DOSE UNKNOWN
     Route: 065

REACTIONS (2)
  - Drug interaction [Unknown]
  - Drug level decreased [Unknown]
